FAERS Safety Report 8813712 (Version 1)
Quarter: 2012Q4

REPORT INFORMATION
  Report Type: 
  Country: FR (occurrence: FR)
  Receive Date: 20120928
  Receipt Date: 20120928
  Transmission Date: 20130627
  Serious: Yes (Other)
  Sender: FDA-Public Use
  Company Number: FR-ROCHE-1137745

PATIENT
  Age: 58 Year
  Sex: Male

DRUGS (1)
  1. LUCENTIS [Suspect]
     Indication: DIABETIC RETINAL OEDEMA
     Route: 050

REACTIONS (1)
  - Visual acuity reduced [Unknown]
